FAERS Safety Report 19835426 (Version 1)
Quarter: 2021Q3

REPORT INFORMATION
  Report Type: Spontaneous
  Country: DE (occurrence: DE)
  Receive Date: 20210915
  Receipt Date: 20210915
  Transmission Date: 20211014
  Serious: Yes (Hospitalization)
  Sender: FDA-Public Use
  Company Number: DE-ACCORD-238398

PATIENT
  Age: 64 Year
  Sex: Male
  Weight: 70 kg

DRUGS (10)
  1. MACROGOL 3350/SODIUM CHLORIDE/SODIUM HYDROGEN CARBONATE/POTASSIUM CHLORIDE [Concomitant]
     Active Substance: POLYETHYLENE GLYCOL 3350\POTASSIUM CHLORIDE\SODIUM BICARBONATE\SODIUM CHLORIDE
     Dosage: BEDARF
  2. BISOPROLOL [Concomitant]
     Active Substance: BISOPROLOL
     Dosage: 2.5 MG, 1?0?0?0
  3. METAMIZOLE SODIUM [Concomitant]
     Active Substance: METAMIZOLE SODIUM
     Dosage: 30 GTT, 1?1?1?1
  4. APIXABAN [Suspect]
     Active Substance: APIXABAN
     Indication: PRODUCT USED FOR UNKNOWN INDICATION
     Dosage: 30 MG, 1?0?0?0
  5. MIRTAZAPINE. [Concomitant]
     Active Substance: MIRTAZAPINE
     Dosage: 7.5 MG, 0?0?0?1
  6. FENTANYL. [Concomitant]
     Active Substance: FENTANYL
     Dosage: 200 UG, AS REQUIRED
  7. POTASSIUM CITRATE. [Concomitant]
     Active Substance: POTASSIUM CITRATE
     Dosage: 20 MMOL, 1?0?1?0
  8. LEVOTHYROXINE. [Concomitant]
     Active Substance: LEVOTHYROXINE
     Dosage: 75 UG, 1?0?0?0
  9. ACETYLSALICYLIC ACID [Concomitant]
     Active Substance: ASPIRIN
     Dosage: 100 MG, 1?0?0?0
  10. PREGABALIN. [Concomitant]
     Active Substance: PREGABALIN
     Dosage: 20 MG/ML, 2.5?2.5?2.5?0

REACTIONS (11)
  - Electrocardiogram abnormal [Recovering/Resolving]
  - Anaemia [Recovering/Resolving]
  - Tachypnoea [Recovering/Resolving]
  - Atrial fibrillation [Recovering/Resolving]
  - Cold sweat [Recovering/Resolving]
  - General physical health deterioration [Recovering/Resolving]
  - Condition aggravated [Recovering/Resolving]
  - Respiratory tract haemorrhage [Recovering/Resolving]
  - Tachycardia [Recovering/Resolving]
  - Dyspnoea [Recovering/Resolving]
  - Hypotension [Recovering/Resolving]
